FAERS Safety Report 12616195 (Version 2)
Quarter: 2016Q3

REPORT INFORMATION
  Report Type: Spontaneous
  Country: BE (occurrence: BE)
  Receive Date: 20160802
  Receipt Date: 20160830
  Transmission Date: 20161109
  Serious: Yes (Other)
  Sender: FDA-Public Use
  Company Number: BE-TEVA-681537ISR

PATIENT
  Age: 55 Year
  Sex: Male

DRUGS (11)
  1. SULFAMETHOXAZOLE 400MG, TRIMETHOPRIM 80MG [Concomitant]
     Indication: PSEUDOMONAS INFECTION
     Route: 048
  2. METFORMIN [Concomitant]
     Active Substance: METFORMIN HYDROCHLORIDE
     Indication: GLUCOSE TOLERANCE IMPAIRED
     Dosage: 1000 MILLIGRAM DAILY;
     Route: 048
     Dates: start: 2012
  3. CIPROFLOXACIN. [Concomitant]
     Active Substance: CIPROFLOXACIN
     Indication: SINUSITIS BACTERIAL
     Dosage: 1000 MILLIGRAM DAILY;
     Route: 048
     Dates: start: 2012
  4. FENTANYL. [Interacting]
     Active Substance: FENTANYL
     Indication: THORACIC VERTEBRAL FRACTURE
     Route: 062
     Dates: start: 2012, end: 2012
  5. MYCOPHENOLATE MOFETIL. [Suspect]
     Active Substance: MYCOPHENOLATE MOFETIL
     Indication: IMMUNOSUPPRESSION
     Dosage: 1000 MILLIGRAM DAILY;
  6. TACROLIMUS. [Interacting]
     Active Substance: TACROLIMUS
     Indication: IMMUNOSUPPRESSION
     Dosage: 1 MILLIGRAM DAILY;
  7. METHYLPREDNISOLONE. [Interacting]
     Active Substance: METHYLPREDNISOLONE
     Indication: IMMUNOSUPPRESSION
  8. METHYLPREDNISOLONE. [Interacting]
     Active Substance: METHYLPREDNISOLONE
     Indication: TRANSPLANT REJECTION
     Route: 042
     Dates: start: 2012
  9. ZOLEDRONIC ACID [Concomitant]
     Active Substance: ZOLEDRONIC ACID
     Indication: THORACIC VERTEBRAL FRACTURE
     Dates: start: 2012
  10. CITALOPRAM [Interacting]
     Active Substance: CITALOPRAM HYDROBROMIDE
     Dates: start: 2012, end: 2012
  11. METHYLPREDNISOLONE. [Interacting]
     Active Substance: METHYLPREDNISOLONE
     Route: 042

REACTIONS (3)
  - Drug interaction [Unknown]
  - Stupor [Unknown]
  - Hyponatraemia [Unknown]

NARRATIVE: CASE EVENT DATE: 2012
